FAERS Safety Report 8648315 (Version 3)
Quarter: 2013Q4

REPORT INFORMATION
  Report Type: Spontaneous
  Country: AT (occurrence: AT)
  Receive Date: 20120615
  Receipt Date: 20131108
  Transmission Date: 20140711
  Serious: Yes (Death, Hospitalization, Other)
  Sender: FDA-Public Use
  Company Number: AT-009507513-2012SP031708

PATIENT
  Age: 52 Year
  Sex: Male

DRUGS (9)
  1. NOXAFIL [Suspect]
     Indication: ANTIFUNGAL PROPHYLAXIS
     Dosage: UNK UNK, UNKNOWN
     Route: 065
  2. CORTICOSTEROIDS (UNSPECIFIED) [Concomitant]
     Indication: GRAFT VERSUS HOST DISEASE
     Dosage: INDICATION: GRADE 2 ACUTE GVHD
     Route: 065
  3. VORICONAZOLE [Concomitant]
     Indication: ANTIFUNGAL PROPHYLAXIS
     Dosage: 200 MG, BID
     Route: 042
  4. METHYLPREDNISOLONE [Concomitant]
     Dosage: 2 MG/KG, QD
     Route: 065
  5. MYCOPHENOLATE MOFETIL [Concomitant]
     Dosage: 1.5 MG/KG, BID
     Route: 065
  6. AMPHOTERICIN B (+) CHOLESTEROL (+) DISTEAROYLPHOSPHATIDYLGLYCEROL (+) [Concomitant]
     Dosage: 5 MG/KG, QD
     Route: 065
  7. CASPOFUNGIN ACETATE [Concomitant]
     Dosage: 70 MG, QD
     Route: 065
  8. ITRACONAZOLE [Concomitant]
     Dosage: 200 MG, BID
     Route: 042
  9. REMICADE [Concomitant]
     Indication: GRAFT VERSUS HOST DISEASE
     Dosage: TWO DOSES
     Route: 065

REACTIONS (3)
  - Graft versus host disease [Fatal]
  - Multi-organ failure [Fatal]
  - Diarrhoea [Recovered/Resolved]
